FAERS Safety Report 17537313 (Version 1)
Quarter: 2020Q1

REPORT INFORMATION
  Report Type: Report from Study
  Country: US (occurrence: US)
  Receive Date: 20200313
  Receipt Date: 20200313
  Transmission Date: 20200409
  Serious: Yes (Hospitalization)
  Sender: FDA-Public Use
  Company Number: US-BAYER-2020-042407

PATIENT
  Age: 62 Year
  Sex: Female
  Weight: 70.3 kg

DRUGS (4)
  1. REMODULIN [Concomitant]
     Active Substance: TREPROSTINIL
     Dosage: UNK
     Route: 058
     Dates: end: 20200303
  2. ADEMPAS [Suspect]
     Active Substance: RIOCIGUAT
     Indication: PULMONARY ARTERIAL HYPERTENSION
     Dosage: UNK
     Dates: start: 20190604
  3. ADEMPAS [Suspect]
     Active Substance: RIOCIGUAT
     Indication: PULMONARY ARTERIAL HYPERTENSION
     Dosage: 2.5 MG, TID
     Route: 048
  4. ORENITRAM [Concomitant]
     Active Substance: TREPROSTINIL
     Dosage: UNK
     Dates: start: 20200303

REACTIONS (2)
  - Oedema [Unknown]
  - Hospitalisation [None]

NARRATIVE: CASE EVENT DATE: 20200303
